FAERS Safety Report 8143364-8 (Version None)
Quarter: 2012Q1

REPORT INFORMATION
  Report Type: 
  Country: None (occurrence: None)
  Receive Date: 20120217
  Receipt Date: 20120206
  Transmission Date: 20120608
  Serious: Yes (Hospitalization)
  Sender: FDA-Public Use
  Company Number: US-JNJFOC-20120204873

PATIENT
  Sex: Male
  Weight: 65.7 kg

DRUGS (7)
  1. PROBIOTICS [Concomitant]
  2. PREDNISONE TAB [Concomitant]
  3. CIMZIA [Concomitant]
     Dates: start: 20110303
  4. REMICADE [Suspect]
     Indication: CROHN'S DISEASE
     Route: 042
     Dates: start: 20110106
  5. ANTIBIOTICS [Concomitant]
     Indication: CROHN'S DISEASE
  6. METHOTREXATE [Concomitant]
  7. NATURAL SUPPLEMENTS [Concomitant]

REACTIONS (1)
  - CROHN'S DISEASE [None]
